FAERS Safety Report 22396897 (Version 1)
Quarter: 2023Q2

REPORT INFORMATION
  Report Type: Report from Study
  Country: US (occurrence: US)
  Receive Date: 20230601
  Receipt Date: 20230601
  Transmission Date: 20230722
  Serious: Yes (Congenital Anomaly, Other)
  Sender: FDA-Public Use
  Company Number: US-ABBVIE-5184540

PATIENT
  Age: 4 Month
  Sex: Male
  Weight: 5 kg

DRUGS (2)
  1. HUMIRA [Suspect]
     Active Substance: ADALIMUMAB
     Indication: Maternal exposure timing unspecified
     Route: 063
  2. FAMOTIDINE [Concomitant]
     Active Substance: FAMOTIDINE
     Indication: Product used for unknown indication
     Dosage: 40MG/5 ML; DAILY 0.6 ML
     Dates: start: 20230203

REACTIONS (8)
  - Infantile haemangioma [Unknown]
  - Exposure via breast milk [Unknown]
  - Dysphonia [Unknown]
  - Rash [Unknown]
  - Food allergy [Unknown]
  - Unevaluable event [Unknown]
  - Congenital lacrimal gland anomaly [Unknown]
  - Foetal exposure during pregnancy [Unknown]

NARRATIVE: CASE EVENT DATE: 20221201
